FAERS Safety Report 6580135-8 (Version None)
Quarter: 2010Q1

REPORT INFORMATION
  Report Type: 
  Country: None (occurrence: None)
  Receive Date: 20100203
  Receipt Date: 20100118
  Transmission Date: 20100710
  Serious: Yes (Life-Threatening, Hospitalization)
  Sender: FDA-Public Use
  Company Number: PD117

PATIENT
  Age: 30 Year
  Sex: Female

DRUGS (1)
  1. CETIRIZINE HCL [Suspect]
     Indication: IDIOPATHIC URTICARIA
     Dosage: 10 MG, 1 TIME, ORAL
     Route: 048

REACTIONS (5)
  - DYSPNOEA [None]
  - LOSS OF CONSCIOUSNESS [None]
  - PRURITUS [None]
  - SPEECH DISORDER [None]
  - URTICARIA [None]
